FAERS Safety Report 15128293 (Version 1)
Quarter: 2018Q3

REPORT INFORMATION
  Report Type: Spontaneous
  Country: JP (occurrence: JP)
  Receive Date: 20180711
  Receipt Date: 20180711
  Transmission Date: 20181010
  Serious: Yes (Other)
  Sender: FDA-Public Use
  Company Number: JP-LUPIN PHARMACEUTICALS INC.-2018-03955

PATIENT
  Age: 78 Year
  Sex: Male

DRUGS (1)
  1. CLARITHROMYCIN. [Suspect]
     Active Substance: CLARITHROMYCIN
     Indication: THROMBOCYTOPENIA
     Dosage: 800 MG, ONCE A DAY
     Route: 065

REACTIONS (2)
  - Nausea [Unknown]
  - Palpitations [Unknown]
